FAERS Safety Report 20972958 (Version 1)
Quarter: 2022Q2

REPORT INFORMATION
  Report Type: Spontaneous
  Country: NL (occurrence: NL)
  Receive Date: 20220617
  Receipt Date: 20220617
  Transmission Date: 20220720
  Serious: Yes (Disabling)
  Sender: FDA-Public Use
  Company Number: NL-LRB-00811616

PATIENT
  Sex: Male
  Weight: 105 kg

DRUGS (1)
  1. SIMVASTATIN [Suspect]
     Active Substance: SIMVASTATIN
     Indication: Hypercholesterolaemia
     Dosage: UNK
     Route: 065
     Dates: start: 2012, end: 20200101

REACTIONS (3)
  - Muscular weakness [Recovering/Resolving]
  - Muscle spasms [Recovered/Resolved]
  - Myalgia [Recovering/Resolving]
